FAERS Safety Report 18697388 (Version 4)
Quarter: 2024Q1

REPORT INFORMATION
  Report Type: Spontaneous
  Country: US (occurrence: US)
  Receive Date: 20210104
  Receipt Date: 20240104
  Transmission Date: 20240410
  Serious: Yes (Other)
  Sender: FDA-Public Use
  Company Number: US-PFIZER INC-2020517951

PATIENT
  Age: 72 Year
  Sex: Male

DRUGS (1)
  1. XELJANZ [Suspect]
     Active Substance: TOFACITINIB CITRATE
     Indication: Pain
     Dosage: 5 MG

REACTIONS (5)
  - Cardiac operation [Unknown]
  - Pulmonary thrombosis [Unknown]
  - Off label use [Unknown]
  - Arthralgia [Unknown]
  - Malaise [Unknown]
